FAERS Safety Report 12381912 (Version 1)
Quarter: 2016Q2

REPORT INFORMATION
  Report Type: Spontaneous
  Country: US (occurrence: US)
  Receive Date: 20160518
  Receipt Date: 20160518
  Transmission Date: 20160815
  Serious: No
  Sender: FDA-Public Use
  Company Number: US-ELI_LILLY_AND_COMPANY-US201604007074

PATIENT
  Sex: Male

DRUGS (1)
  1. STRATTERA [Suspect]
     Active Substance: ATOMOXETINE HYDROCHLORIDE
     Indication: ATTENTION DEFICIT/HYPERACTIVITY DISORDER
     Dosage: 40 MG, QD
     Route: 065
     Dates: start: 201508

REACTIONS (9)
  - Asthenia [Not Recovered/Not Resolved]
  - Blepharospasm [Recovered/Resolved]
  - Nausea [Recovered/Resolved]
  - Dysuria [Recovering/Resolving]
  - Ejaculation disorder [Recovering/Resolving]
  - Insomnia [Recovering/Resolving]
  - Decreased appetite [Not Recovered/Not Resolved]
  - Hyperhidrosis [Not Recovered/Not Resolved]
  - Arthralgia [Not Recovered/Not Resolved]
